FAERS Safety Report 13358892 (Version 1)
Quarter: 2017Q1

REPORT INFORMATION
  Report Type: Spontaneous
  Country: US (occurrence: US)
  Receive Date: 20170322
  Receipt Date: 20170322
  Transmission Date: 20170429
  Serious: No
  Sender: FDA-Public Use
  Company Number: US-PFIZER INC-1732379

PATIENT
  Age: 78 Year
  Sex: Female
  Weight: 48 kg

DRUGS (37)
  1. PERCOCET /00446701/ [Concomitant]
     Active Substance: ACETAMINOPHEN\OXYCODONE HYDROCHLORIDE\OXYCODONE TEREPHTHALATE
     Indication: PRODUCT USED FOR UNKNOWN INDICATION
     Dosage: NOT REPORTED, PRN, FREQ:3 DAY ;INTERVAL: 1
     Route: 048
  2. METOPROLOL SUCCINATE. [Concomitant]
     Active Substance: METOPROLOL SUCCINATE
     Indication: PRODUCT USED FOR UNKNOWN INDICATION
     Dosage: 25 MG,  FREQ:1 DAY ;INTERVAL: 1
     Route: 048
  3. SODIUM CHLORIDE. [Concomitant]
     Active Substance: SODIUM CHLORIDE
     Indication: PRODUCT USED FOR UNKNOWN INDICATION
     Dosage: 10 ML, AS DIRECTED
     Route: 042
     Dates: start: 20130114, end: 20130125
  4. PIPERACILLIN/TAZOBACTAM [Suspect]
     Active Substance: PIPERACILLIN SODIUM\TAZOBACTAM SODIUM
     Dosage: 13.5 G, FREQ:1 DAY ;INTERVAL: 1
     Route: 042
     Dates: start: 20130315
  5. PIPERACILLIN/TAZOBACTAM [Suspect]
     Active Substance: PIPERACILLIN SODIUM\TAZOBACTAM SODIUM
     Dosage: 13.5 G, FREQ:1 DAY ;INTERVAL: 1
     Dates: start: 20130412
  6. NORVASC [Concomitant]
     Active Substance: AMLODIPINE BESYLATE
     Indication: PRODUCT USED FOR UNKNOWN INDICATION
     Dosage: 10 MG,  FREQ:1 DAY ;INTERVAL: 1
     Route: 048
  7. FERROUS SULFATE. [Concomitant]
     Active Substance: FERROUS SULFATE
     Indication: PRODUCT USED FOR UNKNOWN INDICATION
     Dosage: 325 MG, FREQ:2 DAY ;INTERVAL: 1
     Route: 048
  8. HEPARIN LOCK FLUSH [Concomitant]
     Active Substance: HEPARIN SODIUM
     Dosage: 5 ML, AS NECESSARY
     Route: 042
     Dates: start: 20130125, end: 20130304
  9. CIPRO [Concomitant]
     Active Substance: CIPROFLOXACIN HYDROCHLORIDE
     Indication: PRODUCT USED FOR UNKNOWN INDICATION
     Dosage: 600 MG, FREQ:2 DAY ;INTERVAL: 1
     Route: 048
  10. DIOVAN [Concomitant]
     Active Substance: VALSARTAN
     Dosage: 160 MG, FREQ:1 DAY ;INTERVAL: 1
     Route: 048
  11. OMEPRAZOLE. [Concomitant]
     Active Substance: OMEPRAZOLE
     Indication: PRODUCT USED FOR UNKNOWN INDICATION
     Dosage: 40 MG,  FREQ:1 DAY ;INTERVAL: 1
     Route: 048
  12. PIPERACILLIN/TAZOBACTAM [Suspect]
     Active Substance: PIPERACILLIN SODIUM\TAZOBACTAM SODIUM
     Dosage: 13.5 G, FREQ:1 DAY ;INTERVAL: 1
     Route: 042
     Dates: start: 20130206
  13. PIPERACILLIN/TAZOBACTAM [Suspect]
     Active Substance: PIPERACILLIN SODIUM\TAZOBACTAM SODIUM
     Dosage: 13.5 G, FREQ:1 DAY ;INTERVAL: 1
     Route: 042
     Dates: start: 20130208
  14. PIPERACILLIN/TAZOBACTAM [Suspect]
     Active Substance: PIPERACILLIN SODIUM\TAZOBACTAM SODIUM
     Dosage: 13.5 G,FREQ:1 DAY ;INTERVAL: 1
     Route: 042
     Dates: start: 20130402
  15. FLAGYL [Concomitant]
     Active Substance: METRONIDAZOLE\METRONIDAZOLE HYDROCHLORIDE
     Indication: PRODUCT USED FOR UNKNOWN INDICATION
     Dosage: 500 MG,  FREQ:3 DAY ;INTERVAL: 1
     Route: 048
  16. CALCIUM [Concomitant]
     Active Substance: CALCIUM
     Indication: PRODUCT USED FOR UNKNOWN INDICATION
     Dosage: 600 MG,FREQ:2 DAY ;INTERVAL: 1
     Route: 048
  17. HEPARIN LOCK FLUSH [Concomitant]
     Active Substance: HEPARIN SODIUM
     Dosage: 5 ML, AS NECESSARY
     Route: 042
     Dates: start: 20130304
  18. PIPERACILLIN/TAZOBACTAM [Suspect]
     Active Substance: PIPERACILLIN SODIUM\TAZOBACTAM SODIUM
     Dosage: 13.5 G,  FREQ:1 DAY ;INTERVAL: 1
     Route: 042
     Dates: start: 20130225
  19. PIPERACILLIN/TAZOBACTAM [Suspect]
     Active Substance: PIPERACILLIN SODIUM\TAZOBACTAM SODIUM
     Dosage: 13.5 G, FREQ:1 DAY ;INTERVAL: 1
     Route: 042
     Dates: start: 20130304
  20. PIPERACILLIN/TAZOBACTAM [Suspect]
     Active Substance: PIPERACILLIN SODIUM\TAZOBACTAM SODIUM
     Dosage: 13.5 G,  FREQ:1 DAY ;INTERVAL: 1
     Route: 042
     Dates: start: 20130322
  21. PIPERACILLIN/TAZOBACTAM [Suspect]
     Active Substance: PIPERACILLIN SODIUM\TAZOBACTAM SODIUM
     Dosage: 13.5 G,  FREQ:1 DAY ;INTERVAL: 1
     Route: 042
     Dates: start: 20130402
  22. FOLIC ACID. [Concomitant]
     Active Substance: FOLIC ACID
     Indication: PRODUCT USED FOR UNKNOWN INDICATION
     Dosage: 1 MG,  FREQ:1 DAY ;INTERVAL: 1
     Route: 048
  23. TOBRAMYCIN SULFATE. [Concomitant]
     Active Substance: TOBRAMYCIN SULFATE
     Indication: PRODUCT USED FOR UNKNOWN INDICATION
     Dosage: 80MG/2ML,IJ, FREQ:1 DAY ;INTERVAL: 1
     Route: 050
  24. PIPERACILLIN/TAZOBACTAM [Suspect]
     Active Substance: PIPERACILLIN SODIUM\TAZOBACTAM SODIUM
     Dosage: 13.5 G,  FREQ:1 DAY ;INTERVAL: 1
     Route: 042
     Dates: start: 20130218
  25. PIPERACILLIN/TAZOBACTAM [Suspect]
     Active Substance: PIPERACILLIN SODIUM\TAZOBACTAM SODIUM
     Dosage: 13.5 G, FREQ:1 DAY ;INTERVAL: 1
     Route: 042
     Dates: start: 20130311
  26. PREMARIN [Concomitant]
     Active Substance: ESTROGENS, CONJUGATED
     Indication: PRODUCT USED FOR UNKNOWN INDICATION
     Dosage: 0.3 MG,  FREQ:1 DAY ;INTERVAL: 1
     Route: 048
  27. ASPIRIN /00002701/ [Concomitant]
     Active Substance: ASPIRIN
     Indication: PRODUCT USED FOR UNKNOWN INDICATION
     Dosage: 81 MG,  FREQ:1 DAY ;INTERVAL: 1
     Route: 048
  28. PIPERACILLIN/TAZOBACTAM [Suspect]
     Active Substance: PIPERACILLIN SODIUM\TAZOBACTAM SODIUM
     Dosage: 13.5 G,  FREQ:1 DAY ;INTERVAL: 1
     Route: 042
     Dates: start: 20130218
  29. PIPERACILLIN/TAZOBACTAM [Suspect]
     Active Substance: PIPERACILLIN SODIUM\TAZOBACTAM SODIUM
     Dosage: 13.5 G,  FREQ:1 DAY ;INTERVAL: 1
     Route: 042
     Dates: start: 20130322
  30. PIPERACILLIN/TAZOBACTAM [Suspect]
     Active Substance: PIPERACILLIN SODIUM\TAZOBACTAM SODIUM
     Dosage: 13.5 G, FREQ:1 DAY ;INTERVAL: 1
     Route: 042
     Dates: start: 20130405
  31. DIOVAN [Concomitant]
     Active Substance: VALSARTAN
     Indication: PRODUCT USED FOR UNKNOWN INDICATION
     Dosage: 80 MG, FREQ:1 DAY ;INTERVAL: 1
     Route: 048
  32. PIPERACILLIN/TAZOBACTAM [Suspect]
     Active Substance: PIPERACILLIN SODIUM\TAZOBACTAM SODIUM
     Indication: CELLULITIS
     Dosage: 13.5 G,  FREQ:1 DAY ;INTERVAL: 1
     Route: 042
     Dates: start: 20130201
  33. PIPERACILLIN/TAZOBACTAM [Suspect]
     Active Substance: PIPERACILLIN SODIUM\TAZOBACTAM SODIUM
     Dosage: 13.5 G,  FREQ:1 DAY ;INTERVAL: 1
     Route: 042
     Dates: start: 20130201
  34. AMITRIPTYLINE [Concomitant]
     Active Substance: AMITRIPTYLINE
     Indication: PRODUCT USED FOR UNKNOWN INDICATION
     Dosage: 75 MG, HS
     Route: 048
  35. HEPARIN LOCK FLUSH [Concomitant]
     Active Substance: HEPARIN SODIUM
     Indication: PRODUCT USED FOR UNKNOWN INDICATION
     Dosage: 5 ML, AS NECESSARY
     Route: 042
     Dates: start: 20130114, end: 20130125
  36. LEVOTHYROXINE SODIUM. [Concomitant]
     Active Substance: LEVOTHYROXINE SODIUM
     Indication: PRODUCT USED FOR UNKNOWN INDICATION
     Dosage: 50 UG, FREQ:1 DAY ;INTERVAL: 1
     Route: 048
  37. SODIUM CHLORIDE. [Concomitant]
     Active Substance: SODIUM CHLORIDE
     Dosage: 10 ML, AS DIRECTED
     Route: 042
     Dates: start: 20130125

REACTIONS (4)
  - Device occlusion [Recovered/Resolved]
  - No adverse event [Unknown]
  - Documented hypersensitivity to administered product [Recovered/Resolved]
  - Drug dose omission [Recovered/Resolved]

NARRATIVE: CASE EVENT DATE: 20130412
